FAERS Safety Report 14511240 (Version 2)
Quarter: 2018Q1

REPORT INFORMATION
  Report Type: Not Available
  Country: FR (occurrence: FR)
  Receive Date: 20180209
  Receipt Date: 20180222
  Transmission Date: 20180509
  Serious: Yes (Hospitalization, Other)
  Sender: FDA-Public Use
  Company Number: FR-CELGENEUS-FRA-20180109745

PATIENT
  Age: 59 Year
  Sex: Male
  Weight: 60 kg

DRUGS (11)
  1. TIORFAN [Concomitant]
     Active Substance: RACECADOTRIL
     Indication: DIARRHOEA
     Dosage: 100 MILLIGRAM
     Route: 048
     Dates: start: 20171222
  2. FUROSEMIDE. [Concomitant]
     Active Substance: FUROSEMIDE
     Indication: DIURETIC THERAPY
     Dosage: 20 MILLIGRAM
     Route: 048
     Dates: start: 20171226, end: 20180108
  3. DIOSMECTITE [Concomitant]
     Active Substance: MONTMORILLONITE
     Indication: DIARRHOEA
     Route: 048
     Dates: start: 20171217
  4. REVLIMID [Suspect]
     Active Substance: LENALIDOMIDE
     Indication: PLASMA CELL MYELOMA
     Dosage: 10 MILLIGRAM
     Route: 048
     Dates: start: 20171219, end: 20180107
  5. KALEORID LP [Concomitant]
     Active Substance: POTASSIUM CHLORIDE
     Indication: HYPOKALAEMIA
     Dosage: 1000 MILLIGRAM
     Route: 048
     Dates: start: 20171217
  6. PANTOPRAZOLE [Concomitant]
     Active Substance: PANTOPRAZOLE
     Indication: OESOPHAGITIS
     Route: 065
  7. BIONOLYTE GLUCOSE [Concomitant]
     Indication: DEHYDRATION
     Dosage: 1 LITERS
     Route: 041
     Dates: start: 20171203
  8. PANTOPRAZOLE [Concomitant]
     Active Substance: PANTOPRAZOLE
     Indication: MELAENA
     Dosage: 40 MILLIGRAM
     Route: 048
     Dates: start: 20171222
  9. DEXAMETHASONE. [Concomitant]
     Active Substance: DEXAMETHASONE
     Indication: PLASMA CELL MYELOMA
     Dosage: 40 MILLIGRAM
     Route: 048
     Dates: start: 20171219
  10. IXAZOMIB [Suspect]
     Active Substance: IXAZOMIB
     Indication: PLASMA CELL MYELOMA
     Route: 065
  11. NEFOPAM [Concomitant]
     Active Substance: NEFOPAM
     Indication: GAIT DISTURBANCE
     Route: 041
     Dates: start: 20171203, end: 20180107

REACTIONS (6)
  - Cholestasis [Not Recovered/Not Resolved]
  - Haemolysis [Unknown]
  - Hepatic failure [Unknown]
  - Gamma-glutamyltransferase increased [Unknown]
  - Transaminases increased [Not Recovered/Not Resolved]
  - Blood bilirubin unconjugated increased [Unknown]

NARRATIVE: CASE EVENT DATE: 20180115
